FAERS Safety Report 21322255 (Version 3)
Quarter: 2022Q4

REPORT INFORMATION
  Report Type: Spontaneous
  Country: AU (occurrence: None)
  Receive Date: 20220912
  Receipt Date: 20221019
  Transmission Date: 20230113
  Serious: Yes (Other)
  Sender: FDA-Public Use
  Company Number: AU-ROCHE-3176357

PATIENT
  Sex: Male

DRUGS (10)
  1. RITUXIMAB [Suspect]
     Active Substance: RITUXIMAB
     Indication: Follicular lymphoma
     Dosage: R-CHOP
     Route: 042
     Dates: start: 20210813, end: 20211203
  2. RITUXIMAB [Suspect]
     Active Substance: RITUXIMAB
     Dosage: R-ICE THERAPY
     Route: 042
     Dates: start: 20220322, end: 20220517
  3. IFOSFAMIDE [Suspect]
     Active Substance: IFOSFAMIDE
     Indication: Follicular lymphoma
     Dosage: R-ICE THERAPY
     Route: 042
     Dates: start: 20220322, end: 20220517
  4. CARBOPLATIN [Suspect]
     Active Substance: CARBOPLATIN
     Indication: Follicular lymphoma
     Dosage: R-ICE THERAPY
     Route: 042
     Dates: start: 20220322, end: 20220517
  5. ETOPOSIDE [Suspect]
     Active Substance: ETOPOSIDE
     Indication: Follicular lymphoma
     Dosage: R-ICE THERAPY
     Route: 042
     Dates: start: 20220322, end: 20220517
  6. VINBLASTINE [Suspect]
     Active Substance: VINBLASTINE
     Indication: Follicular lymphoma
     Route: 042
     Dates: start: 20220831, end: 20220909
  7. BENDAMUSTINE [Suspect]
     Active Substance: BENDAMUSTINE
     Indication: Follicular lymphoma
     Route: 042
     Dates: start: 20210216, end: 20210707
  8. CYCLOPHOSPHAMIDE\DOXORUBICIN\PREDNISONE\VINCRISTINE [Suspect]
     Active Substance: CYCLOPHOSPHAMIDE\DOXORUBICIN\PREDNISONE\VINCRISTINE
     Indication: Follicular lymphoma
     Route: 042
     Dates: start: 20210813, end: 20211203
  9. AXICABTAGENE CILOLEUCEL [Suspect]
     Active Substance: AXICABTAGENE CILOLEUCEL
     Indication: Follicular lymphoma
     Route: 042
     Dates: start: 20220614
  10. OBINUTUZUMAB [Suspect]
     Active Substance: OBINUTUZUMAB
     Indication: Follicular lymphoma
     Route: 042
     Dates: start: 20210216, end: 20210707

REACTIONS (5)
  - Disease progression [Unknown]
  - Spinal fracture [Unknown]
  - Constipation [Unknown]
  - Rib fracture [Unknown]
  - Decreased appetite [Unknown]
